FAERS Safety Report 8439027-1 (Version None)
Quarter: 2012Q2

REPORT INFORMATION
  Report Type: 
  Country: None (occurrence: None)
  Receive Date: 20120615
  Receipt Date: 20120612
  Transmission Date: 20120825
  Serious: Yes (Hospitalization)
  Sender: FDA-Public Use
  Company Number: US-MYLANLABS-2012S1011525

PATIENT
  Age: 55 Year
  Sex: Male
  Weight: 101 kg

DRUGS (4)
  1. ENALAPRIL MALEATE [Concomitant]
  2. HYDROCHLOROTHIAZIDE [Suspect]
     Route: 048
     Dates: start: 20120517
  3. NEXIUM [Concomitant]
     Indication: GASTROOESOPHAGEAL REFLUX DISEASE
     Route: 048
     Dates: start: 20110801
  4. HYDROCHLOROTHIAZIDE [Suspect]
     Indication: HYPERTENSION
     Route: 048
     Dates: start: 20120319, end: 20120512

REACTIONS (1)
  - MYOCARDIAL INFARCTION [None]
